FAERS Safety Report 16790414 (Version 9)
Quarter: 2023Q1

REPORT INFORMATION
  Report Type: Report from Study
  Country: US (occurrence: US)
  Receive Date: 20190910
  Receipt Date: 20230117
  Transmission Date: 20230417
  Serious: Yes (Other)
  Sender: FDA-Public Use
  Company Number: US-PFIZER INC-2019386544

PATIENT
  Sex: Female
  Weight: 58.05 kg

DRUGS (2)
  1. LYRICA [Suspect]
     Active Substance: PREGABALIN
     Indication: Erythromelalgia
     Dosage: START DATE: 2016: 75 MILLIGRAM, TID (75 MG, 3X/DAY)
     Route: 065
  2. LYRICA [Suspect]
     Active Substance: PREGABALIN
     Indication: Musculoskeletal pain
     Dosage: 2 DOSAGE FORM (TAKES 2 PILLS A DAY]
     Route: 065

REACTIONS (8)
  - Drug dependence [Not Recovered/Not Resolved]
  - Cardiac disorder [Unknown]
  - Asthma [Unknown]
  - Influenza [Not Recovered/Not Resolved]
  - Withdrawal syndrome [Unknown]
  - Pain [Unknown]
  - Off label use [Unknown]
  - Drug effective for unapproved indication [Unknown]

NARRATIVE: CASE EVENT DATE: 20160101
